FAERS Safety Report 7021442-4 (Version None)
Quarter: 2010Q3

REPORT INFORMATION
  Report Type: 
  Country: None (occurrence: None)
  Receive Date: 20100929
  Receipt Date: 20100921
  Transmission Date: 20110219
  Serious: Yes (Other)
  Sender: FDA-Public Use
  Company Number: DK-AMGEN-QUU440000

PATIENT
  Sex: Female
  Weight: 65 kg

DRUGS (2)
  1. NPLATE [Suspect]
     Indication: IDIOPATHIC THROMBOCYTOPENIC PURPURA
     Route: 058
     Dates: start: 20100720
  2. TRANEXAMIC ACID [Concomitant]
     Route: 048
     Dates: start: 20100921

REACTIONS (4)
  - HYPHAEMA [None]
  - PLATELET COUNT DECREASED [None]
  - PYREXIA [None]
  - THERAPEUTIC RESPONSE DECREASED [None]
